FAERS Safety Report 20904186 (Version 1)
Quarter: 2022Q2

REPORT INFORMATION
  Report Type: Spontaneous
  Country: US (occurrence: US)
  Receive Date: 20220602
  Receipt Date: 20220602
  Transmission Date: 20220720
  Serious: No
  Sender: FDA-Public Use
  Company Number: US-CELGENE-USA-20220301673

PATIENT
  Age: 79 Year
  Sex: Female

DRUGS (6)
  1. REVLIMID [Suspect]
     Active Substance: LENALIDOMIDE
     Indication: Plasma cell myeloma
     Dosage: FREQUENCY TEXT: 21/28 DAYS?25 MILLIGRAM
     Route: 048
     Dates: start: 201506
  2. REVLIMID [Suspect]
     Active Substance: LENALIDOMIDE
     Dosage: FREQUENCY TEXT: 21/28 DAYS?10 MILLIGRAM
     Route: 048
     Dates: start: 201601
  3. REVLIMID [Suspect]
     Active Substance: LENALIDOMIDE
     Dosage: FREQUENCY TEXT: 21/28 DAYS?5 MILLIGRAM
     Route: 048
     Dates: start: 201608
  4. REVLIMID [Suspect]
     Active Substance: LENALIDOMIDE
     Dosage: FREQUENCY TEXT: 21/28 DAYS?10 MILLIGRAM
     Route: 048
     Dates: start: 201702
  5. REVLIMID [Suspect]
     Active Substance: LENALIDOMIDE
     Dosage: FREQUENCY TEXT: 21/28 DAYS?5 MILLICURIES
     Route: 048
     Dates: start: 201704
  6. REVLIMID [Suspect]
     Active Substance: LENALIDOMIDE
     Dosage: 3.75 MILLICURIES
     Route: 048
     Dates: start: 20210111

REACTIONS (2)
  - Nasopharyngitis [Recovered/Resolved]
  - Insomnia [Unknown]
